FAERS Safety Report 25970623 (Version 1)
Quarter: 2025Q4

REPORT INFORMATION
  Report Type: Spontaneous
  Country: CO (occurrence: CO)
  Receive Date: 20251028
  Receipt Date: 20251028
  Transmission Date: 20260117
  Serious: Yes (Other)
  Sender: SANDOZ
  Company Number: CO-002147023-NVSC2025CO129400

PATIENT
  Sex: Male
  Weight: 93 kg

DRUGS (6)
  1. METFORMIN [Suspect]
     Active Substance: METFORMIN HYDROCHLORIDE
     Indication: Blood glucose increased
     Dosage: 1000 G, QD (2 YEARS AGO)
     Route: 065
  2. INCLISIRAN [Suspect]
     Active Substance: INCLISIRAN
     Indication: Type IIa hyperlipidaemia
     Dosage: 284 MG, Q3MO
     Route: 058
     Dates: start: 20250712
  3. INCLISIRAN [Suspect]
     Active Substance: INCLISIRAN
     Dosage: UNK (LAST APPLICATION)
     Route: 065
     Dates: start: 20251011
  4. ASPIRIN [Concomitant]
     Active Substance: ASPIRIN
     Indication: Hypertension
     Dosage: 100 MG, QD (APPROXIMATELY 20 YEARS AGO)
     Route: 065
  5. Nabila [Concomitant]
     Indication: Product used for unknown indication
     Dosage: UNK, QD (NOVILOL)
     Route: 065
  6. EZETIMIBE\ROSUVASTATIN CALCIUM [Concomitant]
     Active Substance: EZETIMIBE\ROSUVASTATIN CALCIUM
     Indication: Product used for unknown indication
     Dosage: 1 DOSAGE FORM, STOPPED 3 MONTHS AGO (ROSUVASTATINE 40 MG/ EZETIMIBE 10 MG)
     Route: 065

REACTIONS (15)
  - Fall [Recovering/Resolving]
  - Hand fracture [Unknown]
  - Spinal pain [Unknown]
  - Intervertebral disc protrusion [Not Recovered/Not Resolved]
  - Blister [Recovered/Resolved]
  - Scratch [Recovered/Resolved]
  - Blister rupture [Unknown]
  - Discharge [Unknown]
  - Skin ulcer [Unknown]
  - Movement disorder [Not Recovered/Not Resolved]
  - COVID-19 [Unknown]
  - Cough [Not Recovered/Not Resolved]
  - Sputum discoloured [Not Recovered/Not Resolved]
  - Foot fracture [Recovering/Resolving]
  - Pruritus [Unknown]
